FAERS Safety Report 8065106-7 (Version None)
Quarter: 2012Q1

REPORT INFORMATION
  Report Type: 
  Country: None (occurrence: None)
  Receive Date: 20120117
  Receipt Date: 20110830
  Transmission Date: 20120608
  Serious: Yes (Hospitalization)
  Sender: FDA-Public Use
  Company Number: ACO_23011_2011

PATIENT
  Age: 85 Year
  Sex: Male

DRUGS (17)
  1. TIZANIDINE HCL [Suspect]
     Dosage: 2 MG, EVERY 8 HOURS, ORAL
     Route: 048
  2. THEOPHYLLINE [Concomitant]
  3. TRIMETHOPRIM + SULFAMETHOXAZOLE [Concomitant]
  4. LISINOPRIL [Suspect]
     Indication: PRODUCT USED FOR UNKNOWN INDICATION
     Dosage: 40 MG, QD, ORAL
     Route: 048
  5. CHLORPROMAZINE HYDROCHLORIDE TAB [Concomitant]
  6. METFORMIN HCL [Concomitant]
  7. HYDROCODONE BITARTRATE + ACETAMINOPHEN [Concomitant]
  8. LIDOCAINE [Concomitant]
  9. PRAMIPEXOLE DIHYDROCHLORIDE [Concomitant]
  10. DICLOFENAC [Concomitant]
  11. OMEPRAZOLE [Concomitant]
  12. ONDANSETRON [Concomitant]
  13. CITALOPRAM [Concomitant]
  14. ACETAMINOPHEN [Concomitant]
  15. FINASTERIDE [Concomitant]
  16. SIMVASTATIN [Concomitant]
  17. GUAIFENESIN/CODEINE (CODEINE PHOSPHATE, GUAIFENESIN) [Concomitant]

REACTIONS (6)
  - ASTHENIA [None]
  - BLOOD SODIUM DECREASED [None]
  - HYPOTENSION [None]
  - BLOOD POTASSIUM INCREASED [None]
  - BLOOD CREATININE INCREASED [None]
  - SINUS BRADYCARDIA [None]
